FAERS Safety Report 17508809 (Version 4)
Quarter: 2021Q3

REPORT INFORMATION
  Report Type: Spontaneous
  Country: US (occurrence: US)
  Receive Date: 20200306
  Receipt Date: 20210831
  Transmission Date: 20211014
  Serious: Yes (Other)
  Sender: FDA-Public Use
  Company Number: US-PFIZER INC-2019020321

PATIENT
  Age: 88 Year
  Sex: Male

DRUGS (1)
  1. XELJANZ XR [Suspect]
     Active Substance: TOFACITINIB CITRATE
     Dosage: 11 MG, DAILY

REACTIONS (7)
  - Infection [Unknown]
  - Product prescribing error [Unknown]
  - Irritable bowel syndrome [Unknown]
  - Fall [Unknown]
  - Cervical vertebral fracture [Unknown]
  - Pulmonary fibrosis [Unknown]
  - Lung disorder [Unknown]
